FAERS Safety Report 9380061 (Version 1)
Quarter: 2013Q3

REPORT INFORMATION
  Report Type: Report from Study
  Country: CA (occurrence: CA)
  Receive Date: 20130702
  Receipt Date: 20130702
  Transmission Date: 20140515
  Serious: Yes (Other)
  Sender: FDA-Public Use
  Company Number: CA-JNJFOC-20130618773

PATIENT
  Age: 52 Year
  Sex: Male
  Weight: 113 kg

DRUGS (6)
  1. STELARA [Suspect]
     Indication: PSORIASIS
     Route: 058
     Dates: start: 20120124
  2. LYRICA [Concomitant]
     Route: 048
  3. GLYBURIDE [Concomitant]
  4. METFORMIN [Concomitant]
  5. PAIN MEDICATION UNSPECIFIED [Concomitant]
  6. ANTIHYPERTENSIVE [Concomitant]

REACTIONS (2)
  - Hyperhidrosis [Unknown]
  - Meniere^s disease [Unknown]
